FAERS Safety Report 4863270-1 (Version None)
Quarter: 2005Q4

REPORT INFORMATION
  Report Type: 
  Country: None (occurrence: None)
  Receive Date: 20051219
  Receipt Date: 20051219
  Transmission Date: 20060501
  Serious: Yes (Hospitalization)
  Sender: FDA-Public Use
  Company Number: None

PATIENT
  Age: 47 Year
  Sex: Female
  Weight: 53.0709 kg

DRUGS (1)
  1. HUMIRA [Suspect]
     Indication: RHEUMATOID ARTHRITIS
     Dosage: 40 MG Q 2 WEEK SC
     Route: 058
     Dates: start: 20021201, end: 20051019

REACTIONS (3)
  - ARTHRITIS BACTERIAL [None]
  - BACTERAEMIA [None]
  - STAPHYLOCOCCAL INFECTION [None]
